FAERS Safety Report 15461111 (Version 1)
Quarter: 2018Q4

REPORT INFORMATION
  Report Type: Spontaneous
  Country: NL (occurrence: NL)
  Receive Date: 20181003
  Receipt Date: 20181003
  Transmission Date: 20190204
  Serious: Yes (Other)
  Sender: FDA-Public Use
  Company Number: NL-MYLANLABS-2018M1072119

PATIENT
  Age: 27 Year
  Sex: Female
  Weight: 63 kg

DRUGS (3)
  1. AMITRIPTYLINE [Suspect]
     Active Substance: AMITRIPTYLINE
     Indication: INSOMNIA
     Dosage: 1 KEER PER DAG 1 TABLET
     Dates: start: 2013, end: 20171201
  2. AMITRIPTYLINE [Suspect]
     Active Substance: AMITRIPTYLINE
     Indication: DEPRESSION
  3. AMITRIPTYLINE [Suspect]
     Active Substance: AMITRIPTYLINE
     Indication: ARTHRALGIA

REACTIONS (21)
  - Therapeutic response unexpected [Recovered/Resolved]
  - Dysuria [Recovered/Resolved]
  - Pollakiuria [Recovered/Resolved]
  - Loss of libido [Recovered/Resolved]
  - Fluid retention [Recovered/Resolved]
  - Sleep paralysis [Recovered/Resolved]
  - Galactorrhoea [Recovered/Resolved]
  - Dizziness postural [Recovered/Resolved]
  - Heart rate decreased [Not Recovered/Not Resolved]
  - Breast pain [Recovered/Resolved]
  - Nipple pain [Recovered/Resolved]
  - Increased appetite [Recovered/Resolved]
  - Palpitations [Not Recovered/Not Resolved]
  - Photosensitivity reaction [Recovered/Resolved]
  - Nightmare [Recovered/Resolved]
  - Tinnitus [Recovered/Resolved]
  - Peripheral circulatory failure [Recovered/Resolved]
  - Alopecia [Recovered/Resolved]
  - Arrhythmia [Not Recovered/Not Resolved]
  - Anorgasmia [Recovered/Resolved]
  - Aggression [Recovering/Resolving]

NARRATIVE: CASE EVENT DATE: 20130501
